FAERS Safety Report 8893938 (Version 1)
Quarter: 2012Q4

REPORT INFORMATION
  Report Type: 
  Country: US (occurrence: US)
  Receive Date: 20121107
  Receipt Date: 20121107
  Transmission Date: 20130627
  Serious: No
  Sender: FDA-Public Use
  Company Number: US-AMGEN-USASP2011054171

PATIENT
  Age: 46 Year
  Sex: Female
  Weight: 61.68 kg

DRUGS (5)
  1. ENBREL [Suspect]
     Indication: PSORIATIC ARTHROPATHY
     Dosage: 50 mg, qwk
     Route: 058
  2. FLEXERIL [Concomitant]
     Dosage: 10 mg, UNK
     Route: 048
  3. XANAX [Concomitant]
     Dosage: 0.5 mg, UNK
     Route: 048
  4. IBUPROFEN [Concomitant]
     Dosage: 200 mg, UNK
     Route: 048
  5. IMITREX [Concomitant]
     Dosage: 6 mg, UNK

REACTIONS (8)
  - Cartilage injury [Unknown]
  - Fall [Unknown]
  - Headache [Unknown]
  - Upper-airway cough syndrome [Unknown]
  - Sinus congestion [Unknown]
  - Injection site erythema [Unknown]
  - Injection site pruritus [Unknown]
  - Injection site pain [Unknown]
